FAERS Safety Report 7148681-6 (Version None)
Quarter: 2010Q4

REPORT INFORMATION
  Report Type: 
  Country: None (occurrence: None)
  Receive Date: 20101209
  Receipt Date: 20101201
  Transmission Date: 20110411
  Serious: No
  Sender: FDA-Public Use
  Company Number: BR-ROCHE-685051

PATIENT
  Sex: Male
  Weight: 3 kg

DRUGS (2)
  1. ROACUTAN [Suspect]
     Indication: ACNE
     Dosage: OTHER INDICATION: OILY SKIN; DOSE: THREE CAPSULES A WEEK
     Route: 064
     Dates: start: 20090901
  2. ROACUTAN [Suspect]
     Dosage: DOSE: 1 CAPSULE A WEEK
     Route: 064
     Dates: start: 20091112, end: 20091205

REACTIONS (2)
  - NO ADVERSE EVENT [None]
  - NORMAL NEWBORN [None]
